FAERS Safety Report 20991559 (Version 1)
Quarter: 2022Q2

REPORT INFORMATION
  Report Type: Spontaneous
  Country: ES (occurrence: ES)
  Receive Date: 20220622
  Receipt Date: 20220622
  Transmission Date: 20220721
  Serious: Yes (Other)
  Sender: FDA-Public Use
  Company Number: None

PATIENT
  Age: 53 Year
  Sex: Male

DRUGS (2)
  1. BEVACIZUMAB [Suspect]
     Active Substance: BEVACIZUMAB
     Indication: Glioma
     Dosage: 125 MG/M2
     Route: 065
     Dates: start: 20211201, end: 20220309
  2. IRINOTECAN [Suspect]
     Active Substance: IRINOTECAN
     Indication: Glioma
     Dosage: 10MG/KG/ CADA 2 SEMANAS
     Route: 065
     Dates: start: 20211201, end: 20220309

REACTIONS (3)
  - Large intestine perforation [Recovering/Resolving]
  - Diverticular perforation [Recovering/Resolving]
  - Pneumoperitoneum [Recovering/Resolving]

NARRATIVE: CASE EVENT DATE: 20220405
